FAERS Safety Report 12510229 (Version 2)
Quarter: 2016Q3

REPORT INFORMATION
  Report Type: Spontaneous
  Country: GB (occurrence: GB)
  Receive Date: 20160629
  Receipt Date: 20160725
  Transmission Date: 20161109
  Serious: Yes (Hospitalization)
  Sender: FDA-Public Use
  Company Number: GB-TAKEDA-2016TUS010673

PATIENT
  Sex: Female

DRUGS (1)
  1. ENTYVIO [Suspect]
     Active Substance: VEDOLIZUMAB
     Indication: CROHN^S DISEASE
     Dosage: UNK
     Route: 065

REACTIONS (2)
  - Anal fistula [Unknown]
  - Anal abscess [Unknown]

NARRATIVE: CASE EVENT DATE: 201605
